FAERS Safety Report 5214105-9 (Version None)
Quarter: 2007Q1

REPORT INFORMATION
  Report Type: 
  Country: None (occurrence: None)
  Receive Date: 20070122
  Receipt Date: 20070111
  Transmission Date: 20070707
  Serious: Yes (Other)
  Sender: FDA-Public Use
  Company Number: JP-BRISTOL-MYERS SQUIBB COMPANY-13647490

PATIENT
  Age: 79 Year
  Sex: Female

DRUGS (9)
  1. GATIFLO TABS 100 MG [Suspect]
     Indication: BRONCHOPNEUMONIA
     Route: 048
     Dates: start: 20061227, end: 20070105
  2. GATIFLO TABS 100 MG [Suspect]
     Indication: PYREXIA
     Route: 048
     Dates: start: 20061227, end: 20070105
  3. BANAN [Concomitant]
     Route: 048
     Dates: start: 20061225, end: 20061227
  4. CEFTRIAXONE SODIUM [Concomitant]
     Route: 042
     Dates: start: 20061225, end: 20061228
  5. ENTOMOL [Concomitant]
  6. HUSCODE [Concomitant]
     Route: 048
  7. HOKUNALIN [Concomitant]
     Route: 048
  8. AMBROXOL HCL [Concomitant]
     Route: 048
     Dates: start: 20061226, end: 20061231
  9. IMIPENEM + CILASTATIN [Concomitant]
     Route: 042
     Dates: start: 20061229, end: 20061229

REACTIONS (1)
  - HYPERGLYCAEMIA [None]
